FAERS Safety Report 8159645-8 (Version None)
Quarter: 2012Q1

REPORT INFORMATION
  Report Type: 
  Country: None (occurrence: None)
  Receive Date: 20120223
  Receipt Date: 20120213
  Transmission Date: 20120608
  Serious: Yes (Hospitalization)
  Sender: FDA-Public Use
  Company Number: BR-ROCHE-780181

PATIENT
  Sex: Female
  Weight: 73 kg

DRUGS (7)
  1. METHOTREXATE [Concomitant]
  2. ATENOLOL [Concomitant]
  3. MABTHERA [Suspect]
     Indication: PRODUCT USED FOR UNKNOWN INDICATION
     Route: 042
     Dates: start: 20090901, end: 20091001
  4. MABTHERA [Suspect]
     Route: 042
     Dates: start: 20100801, end: 20100801
  5. DEFLAZACORT [Concomitant]
     Dosage: DRUG NAME: DEFLAZOCORT
  6. ATACAND [Concomitant]
  7. CALCIUM [Concomitant]

REACTIONS (3)
  - RHEUMATOID ARTHRITIS [None]
  - HIP FRACTURE [None]
  - FEMUR FRACTURE [None]
